FAERS Safety Report 8996913 (Version 2)
Quarter: 2013Q1

REPORT INFORMATION
  Report Type: Spontaneous
  Country: DE (occurrence: None)
  Receive Date: 20121220
  Receipt Date: 20130108
  Transmission Date: 20140127
  Serious: Yes (Life-Threatening)
  Sender: FDA-Public Use
  Company Number: 2012-22026

PATIENT
  Age: 85 Year
  Sex: Female

DRUGS (4)
  1. METOCLOPRAMIDE [Suspect]
     Indication: NAUSEA
     Dosage: SINGLE
     Route: 042
  2. CEFTRIAXONE (CEFTRIAXONE) [Concomitant]
  3. METRONIDAZOLE (METRONIDAZOLE) [Concomitant]
  4. HEPARIN [Concomitant]

REACTIONS (4)
  - Methaemoglobinaemia [None]
  - Acute respiratory failure [None]
  - Tachycardia [None]
  - Somnolence [None]
